FAERS Safety Report 12238038 (Version 1)
Quarter: 2016Q2

REPORT INFORMATION
  Report Type: Spontaneous
  Country: US (occurrence: US)
  Receive Date: 20160405
  Receipt Date: 20160405
  Transmission Date: 20160815
  Serious: No
  Sender: FDA-Public Use
  Company Number: US-BAYER-2016-057895

PATIENT
  Age: 85 Year
  Sex: Male
  Weight: 61.22 kg

DRUGS (10)
  1. SOTALOL. [Concomitant]
     Active Substance: SOTALOL
     Dosage: UNK UNK, BID
  2. DIGOXIN. [Concomitant]
     Active Substance: DIGOXIN
  3. LOSARTAN. [Concomitant]
     Active Substance: LOSARTAN
  4. CILOSTAZOL. [Concomitant]
     Active Substance: CILOSTAZOL
     Dosage: UNK UNK, BID
  5. FUROSEMIDE. [Concomitant]
     Active Substance: FUROSEMIDE
  6. TRAMETOL [Concomitant]
  7. MULTIVITAMIN [Concomitant]
     Active Substance: VITAMINS
  8. MIRALAX [Suspect]
     Active Substance: POLYETHYLENE GLYCOL 3350
     Indication: CONSTIPATION
     Dosage: UNK
     Route: 048
     Dates: start: 201601
  9. POTASSIUM [Concomitant]
     Active Substance: POTASSIUM
  10. WARFARIN [Concomitant]
     Active Substance: WARFARIN

REACTIONS (4)
  - Circumstance or information capable of leading to medication error [None]
  - Underdose [None]
  - International normalised ratio decreased [None]
  - Product use issue [None]

NARRATIVE: CASE EVENT DATE: 201601
